FAERS Safety Report 7668136-X (Version None)
Quarter: 2011Q3

REPORT INFORMATION
  Report Type: 
  Country: None (occurrence: None)
  Receive Date: 20110808
  Receipt Date: 20110726
  Transmission Date: 20111222
  Serious: Yes (Other)
  Sender: FDA-Public Use
  Company Number: PHEH2010US01548

PATIENT
  Sex: Female

DRUGS (3)
  1. REFRESH [Concomitant]
  2. GENTEAL MILD LUBRICANT EYE DROPS [Suspect]
     Indication: DRY EYE
  3. GENTEAL GEL [Concomitant]

REACTIONS (4)
  - OCULAR DISCOMFORT [None]
  - EYE DISORDER [None]
  - CORNEAL DYSTROPHY [None]
  - EYE PAIN [None]
